FAERS Safety Report 5562834-X (Version None)
Quarter: 2007Q4

REPORT INFORMATION
  Report Type: 
  Country: None (occurrence: None)
  Receive Date: 20071212
  Receipt Date: 20071212
  Transmission Date: 20080405
  Serious: Yes (Death)
  Sender: FDA-Public Use
  Company Number: None

PATIENT
  Sex: Male
  Weight: 63.6 kg

DRUGS (2)
  1. ERLOTINIB - 150MG - GENETECH [Suspect]
     Indication: NON-SMALL CELL LUNG CANCER
     Dosage: 150MG ORALLY QD
     Route: 048
     Dates: start: 20071113, end: 20071205
  2. DASATINIB - 50MG - BRISTOL-MYERS SQUIBB [Suspect]
     Indication: NON-SMALL CELL LUNG CANCER
     Dosage: 70MG ORALLY BID
     Route: 048
     Dates: start: 20071121, end: 20071205

REACTIONS (4)
  - AGGRESSION [None]
  - CARDIO-RESPIRATORY ARREST [None]
  - DISORIENTATION [None]
  - MYOCARDIAL INFARCTION [None]
